FAERS Safety Report 24702238 (Version 2)
Quarter: 2024Q4

REPORT INFORMATION
  Report Type: Spontaneous
  Country: TH (occurrence: TH)
  Receive Date: 20241205
  Receipt Date: 20241206
  Transmission Date: 20250114
  Serious: No
  Sender: NOVARTIS
  Company Number: TH-002147023-NVSC2024TH228217

PATIENT
  Age: 61 Year
  Sex: Male

DRUGS (1)
  1. IMATINIB [Suspect]
     Active Substance: IMATINIB
     Indication: Chronic myeloid leukaemia
     Dosage: 400 MG, QD (FIRST LINE TREATMENT)
     Route: 065

REACTIONS (2)
  - Tumour marker increased [Unknown]
  - Gene mutation identification test positive [Unknown]
